FAERS Safety Report 22030050 (Version 2)
Quarter: 2023Q1

REPORT INFORMATION
  Report Type: Other
  Country: FR (occurrence: FR)
  Receive Date: 20230223
  Receipt Date: 20230316
  Transmission Date: 20230418
  Serious: Yes (Other)
  Sender: FDA-Public Use
  Company Number: None

PATIENT
  Age: 78 Year
  Sex: Female
  Weight: 65 kg

DRUGS (1)
  1. PADCEV [Suspect]
     Active Substance: ENFORTUMAB VEDOTIN-EJFV
     Indication: Bladder transitional cell carcinoma stage IV
     Dosage: 1.25 MG/KG, CYCLIC (J1,J8, J15 CYCLE)
     Route: 042
     Dates: start: 20220824

REACTIONS (9)
  - Hypothyroidism [Recovering/Resolving]
  - Oedema peripheral [Unknown]
  - Periorbital oedema [Unknown]
  - Paraesthesia [Not Recovered/Not Resolved]
  - Pruritus [Recovering/Resolving]
  - Eczema [Unknown]
  - Diarrhoea [Recovered/Resolved]
  - Lacrimation increased [Unknown]
  - Hypoaesthesia [Not Recovered/Not Resolved]

NARRATIVE: CASE EVENT DATE: 20220801
